FAERS Safety Report 12268311 (Version 1)
Quarter: 2016Q2

REPORT INFORMATION
  Report Type: Spontaneous
  Country: US (occurrence: US)
  Receive Date: 20160414
  Receipt Date: 20160414
  Transmission Date: 20160815
  Serious: No
  Sender: FDA-Public Use
  Company Number: US-MYLANLABS-2016M1004219

PATIENT
  Sex: Female
  Weight: 58.96 kg

DRUGS (3)
  1. CHOLESTEROL HEALTH [Concomitant]
     Dosage: UNK
  2. ESTRADIOL TRANSDERMAL SYSTEM [Suspect]
     Active Substance: ESTRADIOL
     Indication: OESTROGEN REPLACEMENT THERAPY
     Dosage: 0.05 MG/ BID, CHANGE TW
     Route: 062
  3. ANTIHYPERTENSIVES [Concomitant]
     Active Substance: UNSPECIFIED INGREDIENT
     Indication: BLOOD PRESSURE MANAGEMENT
     Dosage: UNK

REACTIONS (1)
  - Hypersensitivity [Not Recovered/Not Resolved]
